FAERS Safety Report 4864974-7 (Version None)
Quarter: 2005Q4

REPORT INFORMATION
  Report Type: 
  Country: None (occurrence: None)
  Receive Date: 20051223
  Receipt Date: 20051128
  Transmission Date: 20060501
  Serious: Yes (Other)
  Sender: FDA-Public Use
  Company Number: PHNU2005DE03901

PATIENT
  Age: 61 Year
  Sex: Male

DRUGS (2)
  1. ZOMETA [Suspect]
     Indication: MULTIPLE MYELOMA
     Dosage: 4 MG, QMO
     Dates: start: 20030606, end: 20050901
  2. AUTOLOGOUS TRANSPLANTATION [Concomitant]
     Dosage: PBSCT
     Dates: start: 20040123, end: 20040123

REACTIONS (6)
  - BONE DISORDER [None]
  - DENTAL TREATMENT [None]
  - IMPAIRED HEALING [None]
  - OSTEONECROSIS [None]
  - SCINTIGRAPHY [None]
  - TOOTH EXTRACTION [None]
